FAERS Safety Report 9109995 (Version 1)
Quarter: 2013Q1

REPORT INFORMATION
  Report Type: Spontaneous
  Country: US (occurrence: US)
  Receive Date: 20130222
  Receipt Date: 20130222
  Transmission Date: 20140127
  Serious: Yes (Other)
  Sender: FDA-Public Use
  Company Number: US-PFIZER INC-2013065797

PATIENT
  Age: 69 Year
  Sex: Male
  Weight: 86.17 kg

DRUGS (2)
  1. PHENYTOIN SODIUM [Suspect]
     Indication: CONVULSION
     Dosage: 400 MG, 1X/DAY
  2. PHENYTOIN SODIUM [Suspect]
     Dosage: 600 MG, 3X/DAY

REACTIONS (6)
  - Transient ischaemic attack [Unknown]
  - Disorientation [Unknown]
  - Intervertebral disc protrusion [Unknown]
  - Dysstasia [Unknown]
  - Drug level increased [Unknown]
  - Tremor [Unknown]
